FAERS Safety Report 10044406 (Version 1)
Quarter: 2014Q1

REPORT INFORMATION
  Report Type: Spontaneous
  Country: FR (occurrence: FR)
  Receive Date: 20140328
  Receipt Date: 20140328
  Transmission Date: 20141002
  Serious: Yes (Hospitalization)
  Sender: FDA-Public Use
  Company Number: FR-009507513-1403FRA010122

PATIENT
  Age: 68 Year
  Sex: Male

DRUGS (4)
  1. EMEND [Suspect]
     Indication: OESOPHAGEAL CARCINOMA
     Dosage: 125 MG, ONCE
     Route: 048
     Dates: start: 20140217, end: 20140217
  2. EMEND [Suspect]
     Dosage: 80 MG, QD
     Route: 048
     Dates: start: 20140218, end: 20140220
  3. CISPLATIN [Concomitant]
     Indication: OESOPHAGEAL CARCINOMA
     Dosage: UNK
     Dates: start: 20140217
  4. FLUOROURACIL [Concomitant]
     Indication: OESOPHAGEAL CARCINOMA
     Dosage: UNK
     Dates: start: 20140217

REACTIONS (3)
  - Agitation [Recovering/Resolving]
  - Blood sodium abnormal [Recovering/Resolving]
  - Incorrect drug administration duration [Unknown]
